FAERS Safety Report 6932571-5 (Version None)
Quarter: 2010Q3

REPORT INFORMATION
  Report Type: 
  Country: None (occurrence: None)
  Receive Date: 20100819
  Receipt Date: 20100720
  Transmission Date: 20110219
  Serious: No
  Sender: FDA-Public Use
  Company Number: US-PFIZER INC-2010091302

PATIENT

DRUGS (2)
  1. ZOLOFT [Suspect]
     Dosage: 50MG DAILY
  2. ZOLOFT [Suspect]
     Dosage: 100 MG DAILY

REACTIONS (1)
  - LEUKOPLAKIA [None]
